FAERS Safety Report 7701630-1 (Version None)
Quarter: 2011Q3

REPORT INFORMATION
  Report Type: 
  Country: None (occurrence: None)
  Receive Date: 20110819
  Receipt Date: 20110819
  Transmission Date: 20111222
  Serious: Yes (Other)
  Sender: FDA-Public Use
  Company Number: None

PATIENT
  Sex: Male
  Weight: 15.4 kg

DRUGS (2)
  1. TRILEPTAL [Suspect]
     Indication: CONVULSION
     Dosage: 7ML BID PO
     Route: 048
     Dates: start: 20090801
  2. TRILEPTAL [Suspect]
     Indication: LISSENCEPHALY
     Dosage: 7ML BID PO
     Route: 048
     Dates: start: 20090801

REACTIONS (3)
  - CONDITION AGGRAVATED [None]
  - PRODUCT SUBSTITUTION ISSUE [None]
  - CONVULSION [None]
